FAERS Safety Report 21380325 (Version 1)
Quarter: 2022Q3

REPORT INFORMATION
  Report Type: Spontaneous
  Country: BR (occurrence: BR)
  Receive Date: 20220927
  Receipt Date: 20220927
  Transmission Date: 20221026
  Serious: Yes (Other)
  Sender: FDA-Public Use
  Company Number: BR-JNJFOC-20220938188

PATIENT
  Age: 44 Year
  Sex: Male
  Weight: 130 kg

DRUGS (2)
  1. STELARA [Suspect]
     Active Substance: USTEKINUMAB
     Indication: Psoriasis
     Route: 058
     Dates: start: 2016
  2. METHOTREXATE [Concomitant]
     Active Substance: METHOTREXATE
     Indication: Psoriasis

REACTIONS (4)
  - Gastric bypass [Recovered/Resolved]
  - Thrombocytopenia [Recovered/Resolved]
  - Transaminases increased [Recovered/Resolved]
  - Dengue fever [Recovered/Resolved]
